FAERS Safety Report 13061616 (Version 1)
Quarter: 2016Q4

REPORT INFORMATION
  Report Type: Spontaneous
  Country: US (occurrence: US)
  Receive Date: 20161226
  Receipt Date: 20161226
  Transmission Date: 20170207
  Serious: No
  Sender: FDA-Public Use
  Company Number: US-NOVEN PHARMACEUTICALS, INC.-US2016000968

PATIENT

DRUGS (3)
  1. MINIVELLE [Suspect]
     Active Substance: ESTRADIOL
     Indication: HYSTERECTOMY
     Dosage: 0.05 MG, 2/WK
     Route: 062
  2. VITAMINS [Concomitant]
     Active Substance: VITAMINS
  3. MINIVELLE [Suspect]
     Active Substance: ESTRADIOL
     Dosage: 0.05 MG, 2/WK
     Route: 062

REACTIONS (3)
  - Product adhesion issue [Not Recovered/Not Resolved]
  - Drug dose omission [Recovered/Resolved]
  - No adverse event [Unknown]
